FAERS Safety Report 10871329 (Version 1)
Quarter: 2015Q1

REPORT INFORMATION
  Report Type: Report from Study
  Country: FR (occurrence: FR)
  Receive Date: 20150226
  Receipt Date: 20150226
  Transmission Date: 20150721
  Serious: Yes (Death)
  Sender: FDA-Public Use
  Company Number: FR-BAXTER-2015BAX010999

PATIENT

DRUGS (2)
  1. GAMMAGARD [Suspect]
     Active Substance: HUMAN IMMUNOGLOBULIN G
     Indication: OFF LABEL USE
  2. GAMMAGARD [Suspect]
     Active Substance: HUMAN IMMUNOGLOBULIN G
     Indication: HISTIOCYTOSIS HAEMATOPHAGIC
     Dosage: MOSTLY AT 2 G/KG (25/46, 52%), WITH A MEDIAN DELAY OF 2 DAYS (-12; 253) AFTER DIAGNOSIS
     Route: 042

REACTIONS (1)
  - Histiocytosis haematophagic [Fatal]
